FAERS Safety Report 10897234 (Version 1)
Quarter: 2015Q1

REPORT INFORMATION
  Report Type: Spontaneous
  Country: US (occurrence: None)
  Receive Date: 20150302
  Receipt Date: 20150302
  Transmission Date: 20150721
  Serious: Yes (Hospitalization)
  Sender: FDA-Public Use
  Company Number: None

PATIENT
  Age: 60 Year
  Sex: Male
  Weight: 68 kg

DRUGS (5)
  1. PHENYTOIN. [Suspect]
     Active Substance: PHENYTOIN
     Indication: SEIZURE
     Dosage: 3-4 CAPSULES BID ORAL
     Route: 048
     Dates: start: 20141201, end: 20150217
  2. DICLOFENAC [Concomitant]
     Active Substance: DICLOFENAC
  3. LATANOPROST. [Concomitant]
     Active Substance: LATANOPROST
  4. OXYCODONE/ACETAMINOPHEN [Concomitant]
     Active Substance: ACETAMINOPHEN\OXYCODONE HYDROCHLORIDE
  5. VENLAFAXINE ER [Concomitant]
     Active Substance: VENLAFAXINE HYDROCHLORIDE

REACTIONS (6)
  - Confusional state [None]
  - Depression [None]
  - Toxicity to various agents [None]
  - Asthenia [None]
  - Anticonvulsant drug level increased [None]
  - Suicidal ideation [None]

NARRATIVE: CASE EVENT DATE: 20150217
